FAERS Safety Report 6512298-4 (Version None)
Quarter: 2009Q4

REPORT INFORMATION
  Report Type: 
  Country: None (occurrence: None)
  Receive Date: 20091222
  Receipt Date: 20090714
  Transmission Date: 20100525
  Serious: No
  Sender: FDA-Public Use
  Company Number: US-ASTRAZENECA-2009UW19739

PATIENT
  Sex: Female

DRUGS (5)
  1. CRESTOR [Suspect]
     Indication: BLOOD CHOLESTEROL
     Route: 048
  2. FOLIC ACID [Concomitant]
  3. AGGRENOX [Concomitant]
  4. METOPROLOL TARTRATE [Concomitant]
  5. VENLAFAXINE [Concomitant]

REACTIONS (1)
  - BLOOD CHOLESTEROL INCREASED [None]
